FAERS Safety Report 23784227 (Version 2)
Quarter: 2024Q2

REPORT INFORMATION
  Report Type: Spontaneous
  Country: US (occurrence: US)
  Receive Date: 20240425
  Receipt Date: 20240430
  Transmission Date: 20240716
  Serious: No
  Sender: FDA-Public Use
  Company Number: US-PFIZER INC-202400093763

PATIENT
  Age: 46 Year
  Sex: Male

DRUGS (2)
  1. BOSULIF [Suspect]
     Active Substance: BOSUTINIB MONOHYDRATE
     Indication: Chronic myeloid leukaemia
     Dosage: 400MG ORAL.TAKE 1 TABLET ONCE DAILY
     Route: 048
     Dates: start: 20240409
  2. SPRYCEL [Concomitant]
     Active Substance: DASATINIB
     Dosage: 100 MG, 1X/DAY (TAKE 1 TABLET ONCE DAILY)
     Route: 048
     Dates: start: 20230420

REACTIONS (4)
  - Nausea [Not Recovered/Not Resolved]
  - Diarrhoea [Not Recovered/Not Resolved]
  - Fatigue [Not Recovered/Not Resolved]
  - Lymphadenopathy [Not Recovered/Not Resolved]

NARRATIVE: CASE EVENT DATE: 20240401
